FAERS Safety Report 6153347-5 (Version None)
Quarter: 2009Q2

REPORT INFORMATION
  Report Type: 
  Country: None (occurrence: None)
  Receive Date: 20090413
  Receipt Date: 20090403
  Transmission Date: 20091009
  Serious: Yes (Hospitalization)
  Sender: FDA-Public Use
  Company Number: US-ABBOTT-09P-163-0566753-00

PATIENT
  Sex: Female
  Weight: 63.56 kg

DRUGS (4)
  1. SYNTHROID [Suspect]
     Indication: HYPOTHYROIDISM
     Route: 048
     Dates: start: 19680101, end: 20080701
  2. SYNTHROID [Suspect]
     Route: 048
     Dates: start: 20080701
  3. UNKNOWN HEART MEDICATION [Concomitant]
     Indication: DRUG USE FOR UNKNOWN INDICATION
     Dosage: UNKNOWN
     Route: 048
  4. LORAZEPAM [Concomitant]
     Indication: ANXIETY
     Dosage: 2-3 DOSAGE FORMS A DAY AS NEEDED
     Route: 048

REACTIONS (4)
  - BACK PAIN [None]
  - DIARRHOEA [None]
  - DYSPEPSIA [None]
  - GASTROOESOPHAGEAL REFLUX DISEASE [None]
